FAERS Safety Report 8354965-6 (Version None)
Quarter: 2012Q2

REPORT INFORMATION
  Report Type: 
  Country: None (occurrence: None)
  Receive Date: 20120511
  Receipt Date: 20120426
  Transmission Date: 20120825
  Serious: Yes (Other)
  Sender: FDA-Public Use
  Company Number: US-ENDO PHARMACEUTICALS INC.-OPCR20120396

PATIENT
  Sex: Female

DRUGS (4)
  1. OPANA ER [Suspect]
     Indication: BACK INJURY
     Route: 048
     Dates: start: 20120328
  2. OPANA ER [Concomitant]
     Indication: BACK INJURY
     Route: 048
     Dates: start: 20100101
  3. OPANA ER [Concomitant]
     Indication: PAIN
  4. OPANA ER [Suspect]
     Indication: PAIN

REACTIONS (3)
  - FAECALOMA [None]
  - CONSTIPATION [None]
  - DRUG EFFECT DECREASED [None]
